FAERS Safety Report 7396749-1 (Version None)
Quarter: 2011Q2

REPORT INFORMATION
  Report Type: 
  Country: None (occurrence: None)
  Receive Date: 20110406
  Receipt Date: 20110322
  Transmission Date: 20111010
  Serious: No
  Sender: FDA-Public Use
  Company Number: US-JNJFOC-20110401965

PATIENT
  Sex: Female

DRUGS (4)
  1. RED RICE SEED NATURAL SUPPLEMENT [Concomitant]
     Indication: BLOOD CHOLESTEROL INCREASED
     Route: 065
  2. DURAGESIC [Suspect]
     Indication: PAIN
     Route: 062
  3. ATENOLOL [Concomitant]
     Indication: BLOOD PRESSURE
     Route: 048
  4. DURAGESIC [Suspect]
     Indication: BACK PAIN
     Route: 062

REACTIONS (1)
  - WRONG TECHNIQUE IN DRUG USAGE PROCESS [None]
